FAERS Safety Report 6342823-8 (Version None)
Quarter: 2009Q3

REPORT INFORMATION
  Report Type: 
  Country: None (occurrence: None)
  Receive Date: 20090908
  Receipt Date: 20090901
  Transmission Date: 20100115
  Serious: Yes (Other)
  Sender: FDA-Public Use
  Company Number: JP-JNJFOC-20090901845

PATIENT

DRUGS (2)
  1. RISPERDAL [Suspect]
     Indication: DRUG USE FOR UNKNOWN INDICATION
     Route: 048
  2. UNSPECIFED MEDICATIONS [Concomitant]
     Route: 065

REACTIONS (3)
  - MYOCLONUS [None]
  - NIGHTMARE [None]
  - SEROTONIN SYNDROME [None]
